FAERS Safety Report 8301335-2 (Version None)
Quarter: 2012Q2

REPORT INFORMATION
  Report Type: 
  Country: None (occurrence: None)
  Receive Date: 20120420
  Receipt Date: 20120419
  Transmission Date: 20120825
  Serious: Yes (Hospitalization)
  Sender: FDA-Public Use
  Company Number: NL-ROCHE-1044975

PATIENT
  Sex: Female
  Weight: 69 kg

DRUGS (8)
  1. PREDNISONE TAB [Suspect]
     Indication: DIFFUSE LARGE B-CELL LYMPHOMA
     Route: 048
     Dates: start: 20110519
  2. VINCRISTINE [Suspect]
     Indication: DIFFUSE LARGE B-CELL LYMPHOMA
     Dosage: LAST DOSE PROR TO SAE ON 02/AUG/2011
     Route: 042
     Dates: start: 20110523
  3. AMLODIPINE [Suspect]
     Indication: HYPERTENSION
     Route: 048
  4. CYCLOPHOSPHAMIDE [Suspect]
     Indication: DIFFUSE LARGE B-CELL LYMPHOMA
     Route: 042
     Dates: start: 20110523
  5. FILGRASTIM [Suspect]
     Indication: DIFFUSE LARGE B-CELL LYMPHOMA
     Dosage: LAST DOSE PRIOR TO SAE ON 03/AUG/2011
     Route: 058
     Dates: start: 20110524
  6. METOPROLOL NOS [Suspect]
     Indication: HYPERTENSION
     Route: 048
     Dates: start: 20120103
  7. MABTHERA [Suspect]
     Indication: DIFFUSE LARGE B-CELL LYMPHOMA
     Dosage: LAST DOSE PROR TO SAE ON 29/SEP/2011
     Route: 042
     Dates: start: 20110523
  8. DOXORUBICIN HCL [Suspect]
     Indication: DIFFUSE LARGE B-CELL LYMPHOMA
     Dosage: LAST DOSE PROR TO SAE ON 02/AUG/2011
     Route: 042
     Dates: start: 20110523

REACTIONS (2)
  - ORTHOSTATIC HYPOTENSION [None]
  - FACIAL NERVE DISORDER [None]
